FAERS Safety Report 18068055 (Version 4)
Quarter: 2020Q3

REPORT INFORMATION
  Report Type: Spontaneous
  Country: US (occurrence: US)
  Receive Date: 20200724
  Receipt Date: 20200929
  Transmission Date: 20201103
  Serious: Yes (Other)
  Sender: FDA-Public Use
  Company Number: US-SEATTLE GENETICS-2020SGN02437

PATIENT
  Sex: Female

DRUGS (2)
  1. TUKYSA [Suspect]
     Active Substance: TUCATINIB
     Indication: BREAST CANCER FEMALE
     Dosage: 2 DF, QD
  2. TUKYSA [Suspect]
     Active Substance: TUCATINIB
     Dosage: UNK, BID

REACTIONS (14)
  - Hepatic cancer [Unknown]
  - Feeling jittery [Unknown]
  - Drug ineffective [Unknown]
  - Asthenia [Unknown]
  - Nocturia [Unknown]
  - Balance disorder [Unknown]
  - Hepatic lesion [Unknown]
  - Hospice care [Unknown]
  - Muscular weakness [Unknown]
  - Diarrhoea [Unknown]
  - Fall [Unknown]
  - Faeces soft [Unknown]
  - Fatigue [Unknown]
  - Intentional product use issue [Unknown]
